FAERS Safety Report 21652172 (Version 3)
Quarter: 2023Q1

REPORT INFORMATION
  Report Type: Report from Study
  Country: CO (occurrence: CO)
  Receive Date: 20221128
  Receipt Date: 20230117
  Transmission Date: 20230418
  Serious: Yes (Other)
  Sender: FDA-Public Use
  Company Number: CO-BAYER-2022A163740

PATIENT
  Age: 31 Year
  Sex: Female

DRUGS (1)
  1. BETAFERON [Suspect]
     Active Substance: INTERFERON BETA-1B
     Indication: Multiple sclerosis
     Dosage: 1 ML
     Route: 058
     Dates: start: 20170323, end: 202210

REACTIONS (12)
  - Optic neuritis [Not Recovered/Not Resolved]
  - Syncope [Not Recovered/Not Resolved]
  - Bladder operation [None]
  - Chills [Not Recovered/Not Resolved]
  - Headache [Not Recovered/Not Resolved]
  - Pain [Not Recovered/Not Resolved]
  - Muscle spasms [Not Recovered/Not Resolved]
  - Paraesthesia [Not Recovered/Not Resolved]
  - Muscle spasms [None]
  - Paraesthesia [None]
  - Eye pain [None]
  - Asthenia [None]

NARRATIVE: CASE EVENT DATE: 20200101
